FAERS Safety Report 8268949-X (Version None)
Quarter: 2012Q2

REPORT INFORMATION
  Report Type: 
  Country: None (occurrence: None)
  Receive Date: 20120409
  Receipt Date: 20120330
  Transmission Date: 20120825
  Serious: Yes (Other)
  Sender: FDA-Public Use
  Company Number: US-ASTRAZENECA-2011SE24458

PATIENT
  Age: 59 Year
  Sex: Male

DRUGS (1)
  1. ATACAND [Suspect]
     Route: 048

REACTIONS (6)
  - VISUAL IMPAIRMENT [None]
  - INTENTIONAL DRUG MISUSE [None]
  - FEELING ABNORMAL [None]
  - CEREBROVASCULAR ACCIDENT [None]
  - BLOOD PRESSURE ABNORMAL [None]
  - MALAISE [None]
